FAERS Safety Report 17189856 (Version 1)
Quarter: 2019Q4

REPORT INFORMATION
  Report Type: Report from Study
  Country: CN (occurrence: CN)
  Receive Date: 20191223
  Receipt Date: 20191223
  Transmission Date: 20200122
  Serious: Yes (Other)
  Sender: FDA-Public Use
  Company Number: CN-ROCHE-2503852

PATIENT

DRUGS (9)
  1. CISPLATIN. [Suspect]
     Active Substance: CISPLATIN
     Indication: NON-SMALL CELL LUNG CANCER
     Dosage: 40 MG/M2 + 0.9% SODIUM CHLORIDE SOLUTION 50 ML, INJECTED WITH THE CENTRAL VENOUS CATHETER
     Route: 034
  2. LIDOCAINE. [Concomitant]
     Active Substance: LIDOCAINE
     Indication: ANALGESIC THERAPY
     Dosage: ONCE PER WEEK, FOR 3 CONSECUTIVE CYCLES
     Route: 038
  3. SODIUM CHLORIDE 0.9% [Concomitant]
     Active Substance: SODIUM CHLORIDE
     Route: 065
  4. CISPLATIN. [Suspect]
     Active Substance: CISPLATIN
     Indication: PLEURAL EFFUSION
  5. BEVACIZUMAB. [Suspect]
     Active Substance: BEVACIZUMAB
     Indication: NON-SMALL CELL LUNG CANCER
     Dosage: 5 MG/KG + 0.9% SODIUM CHLORIDE SOLUTION 20 ML, INJECTED WITH THE CENTRAL VENOUS CATHETER.
     Route: 034
  6. LIDOCAINE. [Concomitant]
     Active Substance: LIDOCAINE
     Indication: ANTIINFLAMMATORY THERAPY
  7. DEXAMETHASONE. [Concomitant]
     Active Substance: DEXAMETHASONE
     Indication: ANTIINFLAMMATORY THERAPY
  8. DEXAMETHASONE. [Concomitant]
     Active Substance: DEXAMETHASONE
     Indication: ANALGESIC THERAPY
     Dosage: ONCE PER WEEK, FOR 3 CONSECUTIVE CYCLES
     Route: 038
  9. BEVACIZUMAB. [Suspect]
     Active Substance: BEVACIZUMAB
     Indication: PLEURAL EFFUSION

REACTIONS (1)
  - Bone marrow failure [Unknown]
